FAERS Safety Report 12162943 (Version 1)
Quarter: 2016Q1

REPORT INFORMATION
  Report Type: Spontaneous
  Country: AR (occurrence: AR)
  Receive Date: 20160309
  Receipt Date: 20160309
  Transmission Date: 20160526
  Serious: Yes (Other)
  Sender: FDA-Public Use
  Company Number: AR-ELI_LILLY_AND_COMPANY-AR201602010037

PATIENT
  Age: 63 Year
  Sex: Male

DRUGS (3)
  1. HUMALOG MIX75/25 [Suspect]
     Active Substance: INSULIN LISPRO
     Dosage: 10 IU, QD
     Route: 058
     Dates: start: 2014
  2. HUMALOG MIX75/25 [Suspect]
     Active Substance: INSULIN LISPRO
     Dosage: 10 IU, EACH EVENING
     Route: 058
     Dates: start: 2014
  3. HUMALOG MIX75/25 [Suspect]
     Active Substance: INSULIN LISPRO
     Indication: TYPE 2 DIABETES MELLITUS
     Dosage: 16 IU, EACH MORNING
     Route: 058
     Dates: start: 2014

REACTIONS (3)
  - Infarction [Unknown]
  - Infarction [Unknown]
  - Injection site haematoma [Unknown]

NARRATIVE: CASE EVENT DATE: 20150617
